FAERS Safety Report 23866713 (Version 4)
Quarter: 2025Q4

REPORT INFORMATION
  Report Type: Spontaneous
  Country: EU (occurrence: EU)
  Receive Date: 20240517
  Receipt Date: 20251003
  Transmission Date: 20260117
  Serious: Yes (Other)
  Sender: SANDOZ
  Company Number: EU-BRISTOL-MYERSSQUIBB COMPANY-2023-105739

PATIENT
  Age: 9 Year
  Sex: Male

DRUGS (21)
  1. ACETAZOLAMIDE [Suspect]
     Active Substance: ACETAZOLAMIDE
     Indication: Intraocular pressure increased
     Dosage: UNK
     Route: 047
  2. BRIMONIDINE [Suspect]
     Active Substance: BRIMONIDINE TARTRATE
     Indication: Intraocular pressure increased
     Route: 047
  3. BRINZOLAMIDE [Suspect]
     Active Substance: BRINZOLAMIDE
     Indication: Intraocular pressure increased
     Dosage: UNK
     Route: 047
  4. CYCLOSPORINE [Suspect]
     Active Substance: CYCLOSPORINE
     Indication: Intraocular pressure increased
     Dosage: UNK
     Route: 047
  5. DECADRON (DEXAMETHASONE SODIUM PHOSPHATE) [Suspect]
     Active Substance: DEXAMETHASONE SODIUM PHOSPHATE
     Indication: Vernal keratoconjunctivitis
     Dosage: UNK
     Route: 047
  6. DECADRON (DEXAMETHASONE SODIUM PHOSPHATE) [Suspect]
     Active Substance: DEXAMETHASONE SODIUM PHOSPHATE
     Dosage: UNK
     Route: 047
  7. DECADRON (DEXAMETHASONE SODIUM PHOSPHATE) [Suspect]
     Active Substance: DEXAMETHASONE SODIUM PHOSPHATE
     Dosage: UNK
     Route: 047
  8. DORZOLAMIDE\TIMOLOL [Suspect]
     Active Substance: DORZOLAMIDE\TIMOLOL
     Indication: Intraocular pressure increased
     Dosage: UNK
     Route: 047
  9. HYDROCORTISONE [Suspect]
     Active Substance: HYDROCORTISONE
     Indication: Vernal keratoconjunctivitis
     Dosage: UNK
     Route: 047
  10. KETOTIFEN [Suspect]
     Active Substance: KETOTIFEN
     Indication: Vernal keratoconjunctivitis
     Dosage: UNK
     Route: 047
  11. KETOTIFEN [Suspect]
     Active Substance: KETOTIFEN
     Dosage: UNK
     Route: 047
  12. TIMOLOL [Suspect]
     Active Substance: TIMOLOL
     Indication: Intraocular pressure increased
     Route: 047
  13. TRIAMCINOLONE ACETONIDE [Suspect]
     Active Substance: TRIAMCINOLONE ACETONIDE
     Dosage: UNK
     Route: 047
  14. TRIAMCINOLONE ACETONIDE [Suspect]
     Active Substance: TRIAMCINOLONE ACETONIDE
     Dosage: UNK
     Route: 047
  15. TRIAMCINOLONE ACETONIDE [Suspect]
     Active Substance: TRIAMCINOLONE ACETONIDE
     Dosage: UNK
     Route: 047
  16. TRIAMCINOLONE ACETONIDE [Suspect]
     Active Substance: TRIAMCINOLONE ACETONIDE
     Indication: Vernal keratoconjunctivitis
     Dosage: BILATERAL
     Route: 047
  17. CYCLOSPORINE [Concomitant]
     Active Substance: CYCLOSPORINE
     Indication: Vernal keratoconjunctivitis
     Route: 047
  18. DEXAMETHASONE [Concomitant]
     Active Substance: DEXAMETHASONE
     Indication: Vernal keratoconjunctivitis
     Dosage: ROUTE OF ADMIN (FREE TEXT): TOPICAL USE
     Route: 065
  19. DEXAMETHASONE [Concomitant]
     Active Substance: DEXAMETHASONE
     Indication: Intraocular pressure increased
     Dosage: UNK
     Route: 061
  20. KETOTIFEN [Concomitant]
     Active Substance: KETOTIFEN
     Dosage: ROUTE OF ADMIN (FREE TEXT): TOPICAL USE
     Route: 065
  21. KETOTIFEN [Concomitant]
     Active Substance: KETOTIFEN
     Indication: Vernal keratoconjunctivitis
     Dosage: UNK
     Route: 061

REACTIONS (4)
  - Glaucoma [Recovering/Resolving]
  - Intraocular pressure increased [Recovered/Resolved]
  - Drug ineffective [Unknown]
  - Therapeutic product effect incomplete [Unknown]
